FAERS Safety Report 7108165-8 (Version None)
Quarter: 2010Q4

REPORT INFORMATION
  Report Type: 
  Country: None (occurrence: None)
  Receive Date: 20101115
  Receipt Date: 20101115
  Transmission Date: 20110411
  Serious: No
  Sender: FDA-Public Use
  Company Number: None

PATIENT
  Age: 73 Year
  Sex: Female
  Weight: 55.7924 kg

DRUGS (1)
  1. BONIVA [Suspect]
     Indication: OSTEOPOROSIS
     Dosage: 150 - MG ONCE - MONTHLY ORAL TAB.
     Route: 048
     Dates: start: 20100826

REACTIONS (2)
  - ASTHENIA [None]
  - MUSCLE TWITCHING [None]
